FAERS Safety Report 8553693-1 (Version None)
Quarter: 2012Q3

REPORT INFORMATION
  Report Type: 
  Country: None (occurrence: None)
  Receive Date: 20120731
  Receipt Date: 20120723
  Transmission Date: 20120928
  Serious: Yes (Hospitalization, Disabling, Other)
  Sender: FDA-Public Use
  Company Number: US-009507513-1207USA010244

PATIENT

DRUGS (8)
  1. ZOCOR [Suspect]
     Route: 048
  2. PARALGIN FORTE [Concomitant]
  3. REMICADE [Suspect]
     Route: 042
  4. ATACAND [Concomitant]
  5. LOPERAMIDE [Concomitant]
  6. METOPROLOL TARTRATE [Concomitant]
  7. PENTASA [Concomitant]
  8. ACETAMINOPHEN [Concomitant]

REACTIONS (6)
  - INTESTINAL STENOSIS [None]
  - ATRIAL FIBRILLATION [None]
  - CORONARY ARTERY STENOSIS [None]
  - CARDIAC FAILURE [None]
  - DILATATION VENTRICULAR [None]
  - AORTIC VALVE INCOMPETENCE [None]
